FAERS Safety Report 21843977 (Version 2)
Quarter: 2023Q1

REPORT INFORMATION
  Report Type: Report from Study
  Country: DE (occurrence: DE)
  Receive Date: 20230110
  Receipt Date: 20230112
  Transmission Date: 20230417
  Serious: Yes (Hospitalization, Other)
  Sender: FDA-Public Use
  Company Number: DE-002147023-PHHY2018DE050479

PATIENT
  Sex: Female
  Weight: 114 kg

DRUGS (15)
  1. LETROZOLE [Suspect]
     Active Substance: LETROZOLE
     Indication: Breast cancer metastatic
     Dosage: 2.5 MG, QD
     Route: 048
     Dates: start: 20180614, end: 20210824
  2. FULVESTRANT [Suspect]
     Active Substance: FULVESTRANT
     Indication: Breast cancer
     Dosage: 500 MILLIGRAM, Q2W
     Route: 058
     Dates: start: 20220715, end: 20220817
  3. KISQALI [Suspect]
     Active Substance: RIBOCICLIB
     Indication: Breast cancer metastatic
     Dosage: 600 MG (EVERY 21 DAYS)
     Route: 048
     Dates: start: 20180704, end: 20180724
  4. KISQALI [Suspect]
     Active Substance: RIBOCICLIB
     Dosage: 600 MG 21 DAYS INTAKE 7 DAYS PAUSE
     Route: 048
     Dates: start: 20220715
  5. KISQALI [Suspect]
     Active Substance: RIBOCICLIB
     Dosage: 600 MG (EVERY 21 DAYS)
     Route: 048
     Dates: start: 20180801, end: 20180821
  6. KISQALI [Suspect]
     Active Substance: RIBOCICLIB
     Dosage: 600 MG (EVERY 21 DAYS)
     Route: 048
     Dates: start: 20180829, end: 20180918
  7. KISQALI [Suspect]
     Active Substance: RIBOCICLIB
     Dosage: 600 MG (EVERY 21 DAYS)
     Route: 048
     Dates: start: 20180926, end: 20181016
  8. KISQALI [Suspect]
     Active Substance: RIBOCICLIB
     Dosage: 600 MG (EVERY 21 DAYS)
     Route: 048
     Dates: start: 20181024, end: 20181113
  9. KISQALI [Suspect]
     Active Substance: RIBOCICLIB
     Dosage: 600 MG (EVERY 21 DAYS)
     Route: 048
     Dates: start: 20181121, end: 20181211
  10. KISQALI [Suspect]
     Active Substance: RIBOCICLIB
     Dosage: 600 MG 21 DAYS INTAKE 7 DAYS PAUSE
     Route: 048
     Dates: start: 20181219, end: 20190427
  11. KISQALI [Suspect]
     Active Substance: RIBOCICLIB
     Dosage: 600 MG 21 DAYS INTAKE 7 DAYS PAUSE
     Route: 048
     Dates: start: 20190508, end: 20200304
  12. KISQALI [Suspect]
     Active Substance: RIBOCICLIB
     Dosage: 600 MG, 21 DAYS INTAKE, 7 DAYS PAUSE
     Route: 048
     Dates: start: 20200318, end: 20210824
  13. ETHINYL ESTRADIOL\NORGESTIMATE [Concomitant]
     Active Substance: ETHINYL ESTRADIOL\NORGESTIMATE
     Indication: Product used for unknown indication
     Dosage: UNK
     Route: 065
  14. LEVOTHYROXINE [Concomitant]
     Active Substance: LEVOTHYROXINE
     Indication: Product used for unknown indication
     Dosage: UNK
     Route: 065
  15. METAMIZOLE [Concomitant]
     Active Substance: METAMIZOLE
     Indication: Product used for unknown indication
     Dosage: UNK
     Route: 065

REACTIONS (14)
  - Cholecystitis [Recovered/Resolved]
  - Haemangioma of liver [Not Recovered/Not Resolved]
  - Metastases to bone [Recovered/Resolved]
  - Pain [Recovered/Resolved]
  - Musculoskeletal chest pain [Not Recovered/Not Resolved]
  - Flank pain [Recovered/Resolved]
  - Diarrhoea [Recovered/Resolved]
  - Dyspnoea [Recovered/Resolved]
  - Rash [Recovered/Resolved]
  - Weight decreased [Unknown]
  - Nausea [Recovered/Resolved]
  - Fatigue [Not Recovered/Not Resolved]
  - Bone pain [Not Recovered/Not Resolved]
  - Arthralgia [Not Recovered/Not Resolved]

NARRATIVE: CASE EVENT DATE: 20180630
